FAERS Safety Report 7571916-2 (Version None)
Quarter: 2011Q2

REPORT INFORMATION
  Report Type: 
  Country: None (occurrence: None)
  Receive Date: 20110624
  Receipt Date: 20101115
  Transmission Date: 20111010
  Serious: No
  Sender: FDA-Public Use
  Company Number: A0892550A

PATIENT
  Age: 54 Year
  Sex: Male

DRUGS (2)
  1. ZYRTEC [Concomitant]
  2. VERAMYST [Suspect]
     Dosage: 2PUFF PER DAY
     Route: 045

REACTIONS (1)
  - BACK PAIN [None]
